FAERS Safety Report 25220540 (Version 1)
Quarter: 2025Q2

REPORT INFORMATION
  Report Type: Spontaneous
  Country: US (occurrence: None)
  Receive Date: 20250418
  Receipt Date: 20250418
  Transmission Date: 20250716
  Serious: Yes (Hospitalization)
  Sender: FDA-CTU
  Company Number: None

PATIENT
  Age: 29 Year
  Sex: Female
  Weight: 120.2 kg

DRUGS (12)
  1. MYCOPHENOLIC ACID [Suspect]
     Active Substance: MYCOPHENOLIC ACID
     Indication: Renal transplant
     Dosage: 720 MG BID ORAL
     Route: 048
     Dates: start: 20220630
  2. TACROLIMUS [Suspect]
     Active Substance: TACROLIMUS
     Indication: Renal transplant
     Dates: start: 20220706
  3. GLIPIZIDE SMG [Concomitant]
  4. MOUNJARO 7.5MG/0.5ML [Concomitant]
  5. COLESTIPOL [Concomitant]
     Active Substance: COLESTIPOL
  6. FLUDROCORTISONE [Concomitant]
     Active Substance: FLUDROCORTISONE
  7. MAG-OXIDE 400MG [Concomitant]
  8. MYCOPHENOLIC ACID [Concomitant]
     Active Substance: MYCOPHENOLIC ACID
  9. ONDANSETRON [Concomitant]
     Active Substance: ONDANSETRON
  10. TACROLIMUS SMG [Concomitant]
  11. HYDROXYCHLOROQUINE [Concomitant]
     Active Substance: HYDROXYCHLOROQUINE
  12. HYDROXYCHLOROQUINE [Concomitant]
     Active Substance: HYDROXYCHLOROQUINE

REACTIONS (3)
  - Electrolyte imbalance [None]
  - Cytomegalovirus test positive [None]
  - Adverse drug reaction [None]

NARRATIVE: CASE EVENT DATE: 20250330
